FAERS Safety Report 5087109-7 (Version None)
Quarter: 2006Q3

REPORT INFORMATION
  Report Type: 
  Country: None (occurrence: None)
  Receive Date: 20060821
  Receipt Date: 20060808
  Transmission Date: 20061208
  Serious: Yes (Hospitalization)
  Sender: FDA-Public Use
  Company Number: 2006084544

PATIENT
  Age: 69 Year
  Sex: Female

DRUGS (11)
  1. AZITHROMYCIN [Suspect]
     Indication: URINARY TRACT INFECTION
     Dosage: 250 MG ORAL
     Route: 048
  2. GASCON (DIMETICONE) [Concomitant]
  3. BIOFERMIN R (STREPTOCOCCUS FAECALIS) [Concomitant]
  4. TOUGHMAC E (ENZYMES NOS) [Concomitant]
  5. KARIKUROMONE (KALLIDINOGENASE) [Concomitant]
  6. METHYCOBAL (MECOBALAMIN) [Concomitant]
  7. CHOREI-TO (HERBAL PREPARATION) [Concomitant]
  8. DAI-KENCHU-TO [Concomitant]
  9. MASHI-NIN-GAN (HERBAL PREPARATION) [Concomitant]
  10. EVISTA [Concomitant]
  11. ELCITONIN (ELCATONIN) [Concomitant]

REACTIONS (2)
  - HYPOKALAEMIA [None]
  - HYPONATRAEMIA [None]
